FAERS Safety Report 5290079-X (Version None)
Quarter: 2007Q1

REPORT INFORMATION
  Report Type: 
  Country: None (occurrence: None)
  Receive Date: 20070330
  Receipt Date: 20070316
  Transmission Date: 20070707
  Serious: Yes (Hospitalization, Other)
  Sender: FDA-Public Use
  Company Number: SPV1-2007-00741

PATIENT
  Age: 70 Year
  Sex: Male

DRUGS (11)
  1. PENTASA [Suspect]
     Indication: COLITIS COLLAGENOUS
     Dosage: 2500 MG DAILY, ORAL
     Route: 048
     Dates: start: 20060929, end: 20070123
  2. FOLACIN /00198401/ (CALCIUM PHOSPHATE, FOLIC ACID) [Concomitant]
  3. HYDROXYZINE [Concomitant]
  4. CYANOCOBALAMIN [Concomitant]
  5. FERROUS SULFATE TAB [Concomitant]
  6. FUROSEMIDE [Concomitant]
  7. POTASSIUM CHLORIDE [Concomitant]
  8. CITODON /00116401/(CODEINE PHOSPHATE, PARACETAMOL) [Concomitant]
  9. METOPROLOL TARTRATE [Concomitant]
  10. PREDNISOLONE [Concomitant]
  11. ISOSORBIDE MONONITRATE [Concomitant]

REACTIONS (5)
  - AGRANULOCYTOSIS [None]
  - BACTERAEMIA [None]
  - LUNG INFILTRATION [None]
  - OLIGURIA [None]
  - SHOCK [None]
